FAERS Safety Report 14631670 (Version 3)
Quarter: 2018Q2

REPORT INFORMATION
  Report Type: Spontaneous
  Country: AU (occurrence: AU)
  Receive Date: 20180313
  Receipt Date: 20180406
  Transmission Date: 20180711
  Serious: Yes (Hospitalization, Other)
  Sender: FDA-Public Use
  Company Number: AU-MYLANLABS-2018M1015059

PATIENT
  Age: 66 Year
  Sex: Female

DRUGS (4)
  1. TRAMADOL. [Concomitant]
     Active Substance: TRAMADOL
     Indication: PRODUCT USED FOR UNKNOWN INDICATION
     Dosage: 25 MG, PM
  2. XARELTO [Concomitant]
     Active Substance: RIVAROXABAN
     Indication: PRODUCT USED FOR UNKNOWN INDICATION
     Dosage: UNK
  3. MINAX 50 (METOPROLOL TARTRATE) [Suspect]
     Active Substance: METOPROLOL TARTRATE
     Indication: CARDIAC DISORDER
     Dosage: 50 MG, QD
  4. MINAX 50 (METOPROLOL TARTRATE) [Suspect]
     Active Substance: METOPROLOL TARTRATE
     Indication: BLOOD PRESSURE ABNORMAL
     Dosage: 25 MG, QD

REACTIONS (18)
  - Myalgia [Unknown]
  - Blood urea increased [None]
  - Systemic lupus erythematosus [Unknown]
  - Feeling abnormal [Unknown]
  - Cardiac disorder [Unknown]
  - Arthralgia [Unknown]
  - Peripheral swelling [Unknown]
  - Heart rate decreased [Unknown]
  - Abdominal pain [Unknown]
  - Rash macular [Unknown]
  - Peripheral swelling [None]
  - Renal disorder [Unknown]
  - Liver disorder [Unknown]
  - Mouth ulceration [Unknown]
  - Joint swelling [None]
  - Mucosal inflammation [Unknown]
  - Vision blurred [Unknown]
  - Bone pain [Unknown]
